FAERS Safety Report 10731584 (Version 1)
Quarter: 2015Q1

REPORT INFORMATION
  Report Type: Report from Study
  Country: US (occurrence: US)
  Receive Date: 20150123
  Receipt Date: 20150123
  Transmission Date: 20150721
  Serious: Yes (Hospitalization, Other)
  Sender: FDA-Public Use
  Company Number: US-ROCHE-1523603

PATIENT
  Age: 65 Year
  Sex: Female
  Weight: 90 kg

DRUGS (7)
  1. CARBOPLATIN. [Suspect]
     Active Substance: CARBOPLATIN
     Dosage: CYCLES 2-6, AUC = 5 FOR CYCLE 2 OVER 30 MINS
     Route: 042
     Dates: start: 20141017
  2. PACLITAXEL. [Suspect]
     Active Substance: PACLITAXEL
     Indication: OVARIAN EPITHELIAL CANCER
     Dosage: CYCLE 1, OVER 1 HR ON DAYS 1, 8,15, LAST DOSE RECEIVED ON 17/OCT/2014
     Route: 042
     Dates: start: 20140919
  3. BEVACIZUMAB [Suspect]
     Active Substance: BEVACIZUMAB
     Indication: OVARIAN EPITHELIAL CANCER
     Dosage: FOR CYCLES 2-6, OVER 30-90 MINS, LAST DOSE RECEIVED ON 17/OCT/2014, PATIENT RECIVED CYCLE 2.
     Route: 042
     Dates: start: 20141017
  4. CARBOPLATIN. [Suspect]
     Active Substance: CARBOPLATIN
     Indication: OVARIAN EPITHELIAL CANCER
     Dosage: CYCLE 1 AND 2, AUC = 6,OVER 30 MINS ON DAY 1 LAST DOSE RECEIVED ON 17/OCT/2014
     Route: 042
     Dates: start: 20140919
  5. VELIPARIB [Suspect]
     Active Substance: VELIPARIB
     Dosage: CYCLES 2, ON DAYS -2-5.
     Route: 048
     Dates: start: 20141018, end: 20141020
  6. VELIPARIB [Suspect]
     Active Substance: VELIPARIB
     Indication: OVARIAN EPITHELIAL CANCER
     Dosage: CYCLE 1, ON DAYS 2-5
     Route: 048
     Dates: start: 20140919
  7. PACLITAXEL. [Suspect]
     Active Substance: PACLITAXEL
     Dosage: CYCLES 2-6, 1 HR ON DAYS 1, 8, 15, CYCLE 2 DAY 15 DOSE WAS HELD.
     Route: 042
     Dates: start: 20141017

REACTIONS (3)
  - Muscular weakness [Recovered/Resolved]
  - Malaise [Recovered/Resolved]
  - Anaemia [Recovered/Resolved]

NARRATIVE: CASE EVENT DATE: 20141024
